FAERS Safety Report 6219725-0 (Version None)
Quarter: 2009Q2

REPORT INFORMATION
  Report Type: 
  Country: None (occurrence: None)
  Receive Date: 20090609
  Receipt Date: 20090525
  Transmission Date: 20091009
  Serious: Yes (Congenital Anomaly)
  Sender: FDA-Public Use
  Company Number: AU-JNJFOC-20051001877

PATIENT
  Sex: Male

DRUGS (3)
  1. TOPAMAX [Suspect]
     Indication: MATERNAL DRUGS AFFECTING FOETUS
  2. VALPROIC ACID SYRUP [Suspect]
     Indication: DRUG EXPOSURE DURING PREGNANCY
  3. FOLIC ACID [Concomitant]
     Indication: DRUG EXPOSURE DURING PREGNANCY
     Route: 049

REACTIONS (1)
  - SPINA BIFIDA [None]
